FAERS Safety Report 25322699 (Version 1)
Quarter: 2025Q2

REPORT INFORMATION
  Report Type: Spontaneous
  Country: CN (occurrence: CN)
  Receive Date: 20250516
  Receipt Date: 20250516
  Transmission Date: 20250717
  Serious: Yes (Hospitalization, Other)
  Sender: BAXTER
  Company Number: None

PATIENT
  Age: 41 Year
  Sex: Female
  Weight: 53 kg

DRUGS (4)
  1. CYCLOPHOSPHAMIDE [Suspect]
     Active Substance: CYCLOPHOSPHAMIDE
     Indication: Breast cancer female
     Dosage: 0.9 G, QD+ 0.9 % SODIUM CHLORIDE INJECTION 100 ML
     Route: 041
     Dates: start: 20250416, end: 20250416
  2. DEXTROSE [Suspect]
     Active Substance: DEXTROSE MONOHYDRATE
     Dosage: 500 ML, QD + PACLITAXEL LIPOSOME FOR INJECTION 270 MG
     Route: 041
     Dates: start: 20250416, end: 20250416
  3. SODIUM CHLORIDE [Suspect]
     Active Substance: SODIUM CHLORIDE
     Dosage: 100 ML, QD +CYCLOPHOSPHAMIDE FOR INJECTION
     Route: 041
     Dates: start: 20250416
  4. PACLITAXEL [Suspect]
     Active Substance: PACLITAXEL
     Indication: Breast cancer female
     Dosage: 270 MG, QD+ 5 % GLUCOSE INJECTION 500 ML
     Route: 041
     Dates: start: 20250416, end: 20250416

REACTIONS (1)
  - Myelosuppression [Recovered/Resolved]

NARRATIVE: CASE EVENT DATE: 20250425
